FAERS Safety Report 10149325 (Version 3)
Quarter: 2014Q3

REPORT INFORMATION
  Report Type: Spontaneous
  Country: US (occurrence: None)
  Receive Date: 20140430
  Receipt Date: 20140811
  Transmission Date: 20150326
  Serious: Yes (Hospitalization)
  Sender: FDA-Public Use
  Company Number: 2014NUEUSA00303

PATIENT
  Age: 63 Year
  Sex: Male

DRUGS (21)
  1. NUEDEXTA [Suspect]
     Active Substance: DEXTROMETHORPHAN HYDROBROMIDE\QUINIDINE SULFATE
     Indication: CRANIOCEREBRAL INJURY
     Dosage: 1 CAP, Q12 HRS
     Dates: start: 20031218, end: 20140207
  2. ADVIL (IBUPROFEN) TABLET [Concomitant]
  3. CARTIA XT (DILTIAZEM HYDROCHLORIDE) CAPSULE [Concomitant]
  4. VITAMIN D (ERGOCALCIFEROL) CAPSULE [Concomitant]
  5. SPIRONOLACTONE (SPIRONOLACTONE) TABLET [Concomitant]
  6. NUEDEXTA [Suspect]
     Active Substance: DEXTROMETHORPHAN HYDROBROMIDE\QUINIDINE SULFATE
     Indication: DEPRESSION
     Dosage: 1 CAP, Q12 HRS
     Dates: start: 20031218, end: 20140207
  7. CELEXA [Concomitant]
     Active Substance: CITALOPRAM HYDROBROMIDE
  8. FLECTOR (DICLOFENAC EPOLAMINE) PATCH [Concomitant]
  9. SYNTHROID [Concomitant]
     Active Substance: LEVOTHYROXINE SODIUM
  10. TESTOPEL (TESTOSTERONE) IMPLANTATION [Concomitant]
  11. KEPPRA [Suspect]
     Active Substance: LEVETIRACETAM
     Indication: CONVULSION
     Route: 048
  12. ENTERIC ASPIRIN (ACETYLSALICYLIC ACID) TABLET [Concomitant]
  13. FLUTICASONE (FLUTICASONE) NASAL DROP [Concomitant]
  14. MULTIVITAMIN (VITAMIN NOS) TABLETS [Concomitant]
  15. OMEPRAZOLE (OMEPRAZOLE) ENTERIC TABLET [Concomitant]
  16. ZOFRAN [Suspect]
     Active Substance: ONDANSETRON HYDROCHLORIDE
     Indication: PRODUCT USED FOR UNKNOWN INDICATION
  17. CARVEDILOL (CARVEDILOL) [Concomitant]
     Active Substance: CARVEDILOL
  18. HYDROCORTISONE (HYDROCORTISONE) TABLET [Concomitant]
  19. NUEDEXTA [Suspect]
     Active Substance: DEXTROMETHORPHAN HYDROBROMIDE\QUINIDINE SULFATE
     Indication: AFFECT LABILITY
     Dosage: 1 CAP, Q12 HRS
     Dates: start: 20031218, end: 20140207
  20. ZOLOFT [Suspect]
     Active Substance: SERTRALINE HYDROCHLORIDE
     Indication: PRODUCT USED FOR UNKNOWN INDICATION
  21. ADDERALL [Concomitant]
     Active Substance: AMPHETAMINE ASPARTATE\AMPHETAMINE SULFATE\DEXTROAMPHETAMINE SACCHARATE\DEXTROAMPHETAMINE SULFATE

REACTIONS (20)
  - Cardiac arrest [None]
  - Hypoacusis [None]
  - Reading disorder [None]
  - Fall [None]
  - Headache [None]
  - Encephalopathy [None]
  - Cognitive disorder [None]
  - Convulsion [None]
  - Affect lability [None]
  - Head injury [None]
  - Fatigue [None]
  - Somnolence [None]
  - Disturbance in attention [None]
  - Serotonin syndrome [None]
  - Visual acuity reduced [None]
  - Electrocardiogram QT prolonged [None]
  - Pyrexia [None]
  - Loss of consciousness [None]
  - Arthralgia [None]
  - Disease progression [None]

NARRATIVE: CASE EVENT DATE: 20140201
